FAERS Safety Report 6826825-0 (Version None)
Quarter: 2010Q3

REPORT INFORMATION
  Report Type: 
  Country: None (occurrence: None)
  Receive Date: 20100709
  Receipt Date: 20100706
  Transmission Date: 20110219
  Serious: Yes (Life-Threatening, Disabling)
  Sender: FDA-Public Use
  Company Number: NO-BAYER-201031558GPV

PATIENT
  Age: 70 Year
  Sex: Male
  Weight: 95 kg

DRUGS (9)
  1. ACETYLSALICYLIC ACID [Suspect]
     Indication: MYOCARDIAL INFARCTION
     Dosage: TOTAL DAILY DOSE: 300 MG
     Route: 048
     Dates: start: 20060715, end: 20060715
  2. PLAVIX [Suspect]
     Indication: MYOCARDIAL INFARCTION
     Dosage: TOTAL DAILY DOSE: 600 MG
     Route: 048
     Dates: start: 20060715, end: 20060715
  3. METALYSE [Suspect]
     Indication: MYOCARDIAL INFARCTION
     Route: 042
     Dates: start: 20060715, end: 20060715
  4. HEPARIN [Suspect]
     Indication: MYOCARDIAL INFARCTION
     Dosage: TOTAL DAILY DOSE: 10000 IU
     Route: 042
     Dates: start: 20060715, end: 20060715
  5. MORPHINE [Concomitant]
     Indication: ANALGESIC THERAPY
     Dosage: TOTAL DAILY DOSE: 40 MG
     Route: 065
     Dates: start: 20060715
  6. CENTYL [Concomitant]
     Indication: ESSENTIAL HYPERTENSION
     Dosage: DOSE:1 UNIT(S)
     Route: 048
     Dates: start: 20060622
  7. IMOVANE [Concomitant]
     Indication: INSOMNIA
     Route: 048
     Dates: start: 20060707
  8. GLYCERYL TRINITRATE [Concomitant]
     Indication: ANGINA PECTORIS
     Route: 060
     Dates: start: 20060707
  9. AFIPRAN [Concomitant]
     Indication: NAUSEA
     Dates: start: 20060715

REACTIONS (2)
  - CEREBRAL HAEMORRHAGE [None]
  - OVERDOSE [None]
